FAERS Safety Report 24976943 (Version 1)
Quarter: 2025Q1

REPORT INFORMATION
  Report Type: Spontaneous
  Country: BE (occurrence: BE)
  Receive Date: 20250217
  Receipt Date: 20250217
  Transmission Date: 20250409
  Serious: Yes (Other)
  Sender: SANDOZ
  Company Number: BE-SANDOZ-SDZ2024BE089866

PATIENT

DRUGS (1)
  1. CIPROFLOXACIN [Suspect]
     Active Substance: CIPROFLOXACIN
     Indication: Cystitis
     Dosage: 500 MG, BID
     Route: 065
     Dates: start: 20240830, end: 20240908

REACTIONS (8)
  - Tenosynovitis stenosans [Unknown]
  - Groin pain [Unknown]
  - Fatigue [Unknown]
  - Paraesthesia [Unknown]
  - Tendon discomfort [Unknown]
  - Musculoskeletal discomfort [Unknown]
  - Pain in extremity [Unknown]
  - Abnormal dreams [Unknown]
